FAERS Safety Report 25164097 (Version 2)
Quarter: 2025Q2

REPORT INFORMATION
  Report Type: Report from Study
  Country: US (occurrence: US)
  Receive Date: 20250405
  Receipt Date: 20250522
  Transmission Date: 20250717
  Serious: Yes (Hospitalization, Other)
  Sender: ABBVIE
  Company Number: US-ABBVIE-6208794

PATIENT
  Age: 82 Year
  Sex: Female
  Weight: 90 kg

DRUGS (1)
  1. LINZESS [Suspect]
     Active Substance: LINACLOTIDE
     Indication: Product used for unknown indication
     Route: 048
     Dates: start: 2021

REACTIONS (5)
  - Small intestinal obstruction [Unknown]
  - Feeding disorder [Unknown]
  - Fluid intake reduced [Unknown]
  - Pain [Unknown]
  - Volvulus of small bowel [Unknown]
